FAERS Safety Report 15559491 (Version 1)
Quarter: 2018Q4

REPORT INFORMATION
  Report Type: Spontaneous
  Country: GB (occurrence: GB)
  Receive Date: 20181029
  Receipt Date: 20181029
  Transmission Date: 20190205
  Serious: Yes (Hospitalization)
  Sender: FDA-Public Use
  Company Number: GB-TEVA-2018-GB-969169

PATIENT
  Age: 78 Year
  Sex: Female

DRUGS (6)
  1. MOMETASONE [Concomitant]
     Active Substance: MOMETASONE
  2. WARFARIN [Suspect]
     Active Substance: WARFARIN
     Indication: ATRIAL FIBRILLATION
     Route: 065
  3. LEVOTHYROXINE. [Concomitant]
     Active Substance: LEVOTHYROXINE
  4. BISOPROLOL [Concomitant]
     Active Substance: BISOPROLOL
  5. AMOXICILLIN. [Concomitant]
     Active Substance: AMOXICILLIN
  6. ALLOPURINOL. [Concomitant]
     Active Substance: ALLOPURINOL

REACTIONS (1)
  - Subdural haematoma [Recovered/Resolved]

NARRATIVE: CASE EVENT DATE: 20180318
